FAERS Safety Report 24444872 (Version 2)
Quarter: 2024Q4

REPORT INFORMATION
  Report Type: Report from Study
  Country: ZA (occurrence: ZA)
  Receive Date: 20241016
  Receipt Date: 20241017
  Transmission Date: 20250114
  Serious: No
  Sender: ROCHE
  Company Number: ZA-ROCHE-2932339

PATIENT
  Age: 63 Year
  Sex: Female
  Weight: 98.0 kg

DRUGS (5)
  1. MABTHERA [Suspect]
     Active Substance: RITUXIMAB
     Indication: Systemic lupus erythematosus
     Dosage: REPEAT 6MONTHS LATER, RECEIVED DOSE ON /DEC/2012? FREQUENCY TEXT:14 DAYS
     Route: 042
     Dates: start: 201806
  2. MABTHERA [Suspect]
     Active Substance: RITUXIMAB
     Indication: Rheumatoid arthritis
  3. RITUXIMAB [Suspect]
     Active Substance: RITUXIMAB
     Indication: Rheumatoid arthritis
     Route: 041
  4. RITUXIMAB [Suspect]
     Active Substance: RITUXIMAB
     Indication: Systemic lupus erythematosus
  5. RITUXIMAB [Suspect]
     Active Substance: RITUXIMAB
     Indication: Vasculitis

REACTIONS (6)
  - C-reactive protein increased [Unknown]
  - Blood creatinine increased [Unknown]
  - Off label use [Unknown]
  - White blood cell count decreased [Unknown]
  - Off label use [Unknown]
  - Ill-defined disorder [Unknown]

NARRATIVE: CASE EVENT DATE: 20211006
